FAERS Safety Report 4370100-3 (Version None)
Quarter: 2004Q2

REPORT INFORMATION
  Report Type: 
  Country: None (occurrence: None)
  Receive Date: 20040527
  Receipt Date: 20040519
  Transmission Date: 20050107
  Serious: Yes (Death)
  Sender: FDA-Public Use
  Company Number: JP-JNJFOC-20040504017

PATIENT
  Age: 98 Year
  Sex: Female

DRUGS (1)
  1. LEVOFLOXACIN [Suspect]
     Indication: CHOLECYSTITIS ACUTE
     Dosage: 500 MG 1 IN 1 DAY ORAL
     Route: 048
     Dates: start: 20040115, end: 20040131

REACTIONS (16)
  - BILIARY DILATATION [None]
  - BLOOD SODIUM DECREASED [None]
  - BRADYARRHYTHMIA [None]
  - BUNDLE BRANCH BLOCK RIGHT [None]
  - CLOSTRIDIUM COLITIS [None]
  - DEHYDRATION [None]
  - DISTURBANCE IN ATTENTION [None]
  - ELECTROCARDIOGRAM ST SEGMENT DEPRESSION [None]
  - FLATULENCE [None]
  - HAEMATOCRIT DECREASED [None]
  - HAEMOGLOBIN DECREASED [None]
  - HYPOTENSION [None]
  - INTERNATIONAL NORMALISED RATIO DECREASED [None]
  - RENAL CYST [None]
  - RENAL FAILURE ACUTE [None]
  - STUPOR [None]
